FAERS Safety Report 9686760 (Version 1)
Quarter: 2013Q4

REPORT INFORMATION
  Report Type: Spontaneous
  Country: GB (occurrence: GB)
  Receive Date: 20131113
  Receipt Date: 20131113
  Transmission Date: 20140711
  Serious: Yes (Life-Threatening)
  Sender: FDA-Public Use
  Company Number: GB-BRISTOL-MYERS SQUIBB COMPANY-19803766

PATIENT
  Age: 63 Year
  Sex: Male
  Weight: 79 kg

DRUGS (11)
  1. METFORMIN HCL [Suspect]
     Indication: TYPE 2 DIABETES MELLITUS
     Dosage: 1000 MG (500 MG,2 IN 1 D)UNK-ONG
     Route: 048
     Dates: start: 20060612
  2. RANOLAZINE HYDROCHLORIDE [Suspect]
     Indication: ANGINA PECTORIS
     Dosage: 750 MG (375 MG,2 IN -1 D) UNK-ONG
     Route: 048
     Dates: start: 20130307
  3. AMLODIPINE [Concomitant]
  4. ASPIRIN [Concomitant]
  5. ATENOLOL [Concomitant]
  6. ATORVASTATIN [Concomitant]
  7. BENDROFLUMETHIAZIDE [Concomitant]
  8. GLICLAZIDE [Concomitant]
  9. ISOSORBIDE MONONITRATE [Concomitant]
  10. LEVOTHYROXINE [Concomitant]
  11. RAMIPRIL [Concomitant]

REACTIONS (2)
  - Renal impairment [Recovered/Resolved]
  - Glomerular filtration rate decreased [Recovered/Resolved]
